FAERS Safety Report 17105470 (Version 3)
Quarter: 2022Q1

REPORT INFORMATION
  Report Type: Report from Study
  Country: US (occurrence: US)
  Receive Date: 20191203
  Receipt Date: 20220211
  Transmission Date: 20220423
  Serious: Yes (Death, Other)
  Sender: FDA-Public Use
  Company Number: US-PFIZER INC-2019517813

PATIENT

DRUGS (2)
  1. DOCETAXEL [Suspect]
     Active Substance: DOCETAXEL
     Indication: Transitional cell carcinoma
     Dosage: ON DAY 1 OF A 21-DAY CYCLE
     Route: 042
  2. PLACEBO [Suspect]
     Active Substance: UNSPECIFIED INGREDIENT
     Indication: Transitional cell carcinoma
     Dosage: 10 MG/KG, ON DAY 1 OF A 21-DAY CYCLE
     Route: 042

REACTIONS (1)
  - Death [Fatal]
